FAERS Safety Report 4979447-0 (Version None)
Quarter: 2006Q2

REPORT INFORMATION
  Report Type: 
  Country: None (occurrence: None)
  Receive Date: 20060421
  Receipt Date: 20050428
  Transmission Date: 20061013
  Serious: Yes (Hospitalization)
  Sender: FDA-Public Use
  Company Number: US-MERCK-0505USA00157

PATIENT
  Age: 81 Year
  Sex: Male
  Weight: 82 kg

DRUGS (6)
  1. VIOXX [Suspect]
     Indication: ARTHRITIS
     Route: 048
     Dates: start: 20010101, end: 20030601
  2. VIOXX [Suspect]
     Route: 048
     Dates: start: 20030801, end: 20040901
  3. LIPITOR [Concomitant]
     Route: 048
  4. NEXIUM [Concomitant]
     Route: 048
  5. MINERALS (UNSPECIFIED) AND VITAMINS (UNSPECIFIED) [Concomitant]
     Route: 065
  6. CHONDROITIN SULFATE SODIUM AND DIMETHYL SULFONE AND GLUCOSAMINE [Concomitant]
     Route: 065

REACTIONS (2)
  - CEREBROVASCULAR ACCIDENT [None]
  - LABILE HYPERTENSION [None]
